FAERS Safety Report 6184745-1 (Version None)
Quarter: 2009Q2

REPORT INFORMATION
  Report Type: 
  Country: None (occurrence: None)
  Receive Date: 20090508
  Receipt Date: 20090427
  Transmission Date: 20091009
  Serious: Yes (Other)
  Sender: FDA-Public Use
  Company Number: PHHY2009BR15811

PATIENT
  Age: 71 Year
  Sex: Female
  Weight: 69 kg

DRUGS (3)
  1. DIOVAN [Suspect]
     Indication: HYPERTENSION
     Dosage: 1 TABLET (80 MG) DAILY
     Route: 048
  2. DIOVAN [Suspect]
     Dosage: 1 TAB/DAY
     Route: 048
  3. INDAPAMIDE [Concomitant]
     Dosage: 1 TABLET PER DAY
     Route: 048
     Dates: start: 20090420

REACTIONS (9)
  - BLINDNESS UNILATERAL [None]
  - BLOOD PRESSURE INADEQUATELY CONTROLLED [None]
  - BLOOD PRESSURE INCREASED [None]
  - GALLBLADDER OPERATION [None]
  - POLLAKIURIA [None]
  - SURGERY [None]
  - TOXOPLASMOSIS [None]
  - UTERINE CANCER [None]
  - VISUAL ACUITY REDUCED [None]
